FAERS Safety Report 10378979 (Version 1)
Quarter: 2014Q3

REPORT INFORMATION
  Report Type: Spontaneous
  Country: US (occurrence: US)
  Receive Date: 20140812
  Receipt Date: 20140812
  Transmission Date: 20150326
  Serious: Yes (Other)
  Sender: FDA-Public Use
  Company Number: US-PFIZER INC-2014222694

PATIENT
  Age: 44 Year
  Sex: Female
  Weight: 112.93 kg

DRUGS (1)
  1. RELPAX [Suspect]
     Active Substance: ELETRIPTAN HYDROBROMIDE
     Indication: MIGRAINE
     Dosage: 40 MG, AS NEEDED

REACTIONS (3)
  - Impaired driving ability [Unknown]
  - Dizziness [Unknown]
  - Somnolence [Unknown]
